FAERS Safety Report 4444503-2 (Version None)
Quarter: 2004Q3

REPORT INFORMATION
  Report Type: 
  Country: None (occurrence: None)
  Receive Date: 20040902
  Receipt Date: 20040817
  Transmission Date: 20050211
  Serious: Yes (Death)
  Sender: FDA-Public Use
  Company Number: USA040260372

PATIENT
  Age: 54 Year
  Sex: Female
  Weight: 63 kg

DRUGS (8)
  1. FORTEO [Suspect]
     Indication: OSTEOPOROSIS
     Dosage: 20 UG/1 DAY
     Dates: start: 20040226, end: 20040226
  2. DARVOCET-N 100 [Concomitant]
  3. IMITREX (SUMARTRIPTAN SUCCINATE) [Concomitant]
  4. ADAVIR [Concomitant]
  5. AUGMENTIN '125' [Concomitant]
  6. ZANAFLEX [Concomitant]
  7. MAVIK [Concomitant]
  8. SYNTHROID [Concomitant]

REACTIONS (3)
  - LUNG NEOPLASM MALIGNANT [None]
  - METASTASES TO CENTRAL NERVOUS SYSTEM [None]
  - RASH GENERALISED [None]
